FAERS Safety Report 11997622 (Version 1)
Quarter: 2016Q1

REPORT INFORMATION
  Report Type: Spontaneous
  Country: US (occurrence: US)
  Receive Date: 20160203
  Receipt Date: 20160203
  Transmission Date: 20160526
  Serious: No
  Sender: FDA-Public Use
  Company Number: US-ANACOR-2015ANA00156

PATIENT
  Age: 92 Year
  Sex: Male
  Weight: 80.73 kg

DRUGS (8)
  1. AVODART [Concomitant]
     Active Substance: DUTASTERIDE
  2. AZELASTINE [Concomitant]
     Active Substance: AZELASTINE
  3. FUROSEMIDE. [Concomitant]
     Active Substance: FUROSEMIDE
  4. POTASSIUM CHLORIDE. [Concomitant]
     Active Substance: POTASSIUM CHLORIDE
  5. KERYDIN [Suspect]
     Active Substance: TAVABOROLE
     Indication: ONYCHOMYCOSIS
     Dosage: UNK, 1X/DAY
     Route: 061
     Dates: start: 201510, end: 201510
  6. ALENDRONATE [Concomitant]
     Active Substance: ALENDRONATE SODIUM
  7. OXYCODONE WITH ACETAMINOPHEN [Concomitant]
  8. COMPOUNDED NEUROPATHY CREAM [Concomitant]

REACTIONS (2)
  - Swollen tongue [Recovered/Resolved]
  - Pharyngeal oedema [Recovered/Resolved]

NARRATIVE: CASE EVENT DATE: 201510
